FAERS Safety Report 5952132-4 (Version None)
Quarter: 2008Q4

REPORT INFORMATION
  Report Type: 
  Country: None (occurrence: None)
  Receive Date: 20081113
  Receipt Date: 20080530
  Transmission Date: 20090506
  Serious: No
  Sender: FDA-Public Use
  Company Number: A0730328A

PATIENT
  Age: 58 Year
  Sex: Female

DRUGS (2)
  1. CARVEDILOL [Suspect]
     Dosage: 25MG TWICE PER DAY
     Route: 048
     Dates: start: 20080301, end: 20080401
  2. NO CONCURRENT MEDICATION [Concomitant]

REACTIONS (2)
  - DRUG INEFFECTIVE [None]
  - HYPOVENTILATION [None]
